FAERS Safety Report 9302336 (Version 2)
Quarter: 2013Q2

REPORT INFORMATION
  Report Type: Report from Study
  Country: US (occurrence: US)
  Receive Date: 20130522
  Receipt Date: 20130618
  Transmission Date: 20140414
  Serious: Yes (Death, Hospitalization)
  Sender: FDA-Public Use
  Company Number: US-009507513-1305USA009595

PATIENT
  Age: 58 Year
  Sex: Male
  Weight: 74.6 kg

DRUGS (14)
  1. BOCEPREVIR [Suspect]
     Indication: HEPATITIS C
     Dosage: 800 MG, TID
     Route: 048
     Dates: start: 20121231, end: 20130321
  2. REBETOL [Suspect]
     Indication: HEPATITIS C
     Dosage: 400 MG, QAM
     Route: 048
     Dates: start: 20121231, end: 20130321
  3. REBETOL [Suspect]
     Dosage: 600 MG, QPM
     Route: 048
     Dates: start: 20121231, end: 20130321
  4. PEGINTRON [Suspect]
     Indication: HEPATITIS C
     Dosage: 120 MICROGRAM, QW
     Route: 058
     Dates: start: 20121231, end: 20130321
  5. PERCOCET [Concomitant]
     Dosage: UNK
     Dates: start: 20130424
  6. LASIX (FUROSEMIDE SODIUM) [Concomitant]
     Dosage: UNK
     Dates: start: 20121105
  7. INDERAL [Concomitant]
     Dosage: UNK
     Dates: start: 20130424
  8. OMEPRAZOLE [Concomitant]
     Dosage: UNK
     Dates: start: 20120912
  9. ZOFRAN [Concomitant]
     Dosage: UNK
     Dates: start: 20130314
  10. RESTORIL (CHLORMEZANONE) [Concomitant]
     Dosage: UNK
     Dates: start: 20120131
  11. GLIPIZIDE [Concomitant]
     Dosage: UNK
     Dates: start: 20120131
  12. ALDACTONE TABLETS [Concomitant]
     Dosage: UNK
     Dates: start: 20121105
  13. ANTIMICROBIAL (UNSPECIFIED) [Concomitant]
  14. AUGMENTIN [Concomitant]
     Dosage: 375 MG, BID
     Route: 048
     Dates: end: 20130531

REACTIONS (9)
  - Hypoxia [Fatal]
  - Respiratory failure [Fatal]
  - Infectious pleural effusion [Fatal]
  - Pneumothorax [Unknown]
  - Aspiration pleural cavity [Unknown]
  - Unresponsive to stimuli [Unknown]
  - Endotracheal intubation [Unknown]
  - Staphylococcal infection [Unknown]
  - Cough [Unknown]
